FAERS Safety Report 21376976 (Version 4)
Quarter: 2022Q4

REPORT INFORMATION
  Report Type: Spontaneous
  Country: US (occurrence: US)
  Receive Date: 20220926
  Receipt Date: 20221102
  Transmission Date: 20230113
  Serious: Yes (Death, Life-Threatening, Hospitalization, Other)
  Sender: FDA-Public Use
  Company Number: US-PFIZER INC-PV202200067270

PATIENT
  Age: 59 Year
  Sex: Female
  Weight: 71.2 kg

DRUGS (4)
  1. ATORVASTATIN CALCIUM [Interacting]
     Active Substance: ATORVASTATIN CALCIUM
     Indication: Product used for unknown indication
     Dosage: 80 MG, 1X/DAY
     Route: 065
     Dates: start: 20220323, end: 20220913
  2. PAXLOVID [Interacting]
     Active Substance: NIRMATRELVIR\RITONAVIR
     Indication: COVID-19 treatment
     Dosage: 1 DF, 2X/DAY
     Route: 048
     Dates: start: 20220911, end: 20220912
  3. NIFEDIPINE [Interacting]
     Active Substance: NIFEDIPINE
     Indication: Hypertension
     Dosage: 90 MG, 1X/DAY
     Route: 065
     Dates: start: 20220418, end: 20220913
  4. ATORVASTATIN [Concomitant]
     Active Substance: ATORVASTATIN
     Indication: Hyperlipidaemia
     Dosage: 80 MILLIGRAM, QD
     Route: 065

REACTIONS (14)
  - Cardiac arrest [Fatal]
  - Septic shock [Unknown]
  - Acute kidney injury [Unknown]
  - Hyperkalaemia [Unknown]
  - Lactic acidosis [Unknown]
  - Bradycardia [Unknown]
  - Dyspnoea [Unknown]
  - Pneumonitis [Unknown]
  - Ischaemic hepatitis [Unknown]
  - Drug interaction [Unknown]
  - Hypotension [Unknown]
  - Hypophagia [Unknown]
  - Vomiting [Unknown]
  - Nausea [Unknown]

NARRATIVE: CASE EVENT DATE: 20220901
